FAERS Safety Report 9984600 (Version 2)
Quarter: 2014Q1

REPORT INFORMATION
  Report Type: Spontaneous
  Country: US (occurrence: US)
  Receive Date: 20140307
  Receipt Date: 20140307
  Transmission Date: 20141002
  Serious: Yes (Death, Other)
  Sender: FDA-Public Use
  Company Number: US-009507513-0505USA00813

PATIENT
  Sex: Female
  Weight: 44.45 kg

DRUGS (5)
  1. SINGULAIR [Suspect]
     Indication: ASTHMA
     Dosage: UNK
     Route: 048
     Dates: end: 20050124
  2. PROVENTIL [Suspect]
     Indication: DYSPNOEA
     Dosage: 2 PUFFS, QD
     Dates: start: 1993, end: 20050124
  3. AZMACORT [Suspect]
     Indication: ASTHMA
     Dosage: UNK
     Dates: end: 20050124
  4. SEREVENT [Suspect]
     Indication: ASTHMA
     Dosage: UNK
     Dates: end: 20050124
  5. SEREVENT [Suspect]
     Indication: DYSPNOEA

REACTIONS (11)
  - Sudden death [Fatal]
  - Rectal haemorrhage [Unknown]
  - Back pain [Fatal]
  - Dyspnoea [Fatal]
  - Dizziness [Fatal]
  - Heart rate increased [Fatal]
  - Lung neoplasm [Unknown]
  - Loss of consciousness [Fatal]
  - Heart rate increased [Fatal]
  - Unresponsive to stimuli [Fatal]
  - Product quality issue [Unknown]
